FAERS Safety Report 9462089 (Version 1)
Quarter: 2013Q3

REPORT INFORMATION
  Report Type: Report from Study
  Country: CA (occurrence: CA)
  Receive Date: 20130816
  Receipt Date: 20130816
  Transmission Date: 20140515
  Serious: Yes (Other)
  Sender: FDA-Public Use
  Company Number: CA-ABBOTT-13P-028-1132309-00

PATIENT
  Sex: Male

DRUGS (2)
  1. HUMIRA [Suspect]
     Indication: ANKYLOSING SPONDYLITIS
     Route: 058
     Dates: start: 20120326, end: 2013
  2. HUMIRA [Suspect]
     Route: 058
     Dates: start: 20130723

REACTIONS (2)
  - Crohn^s disease [Unknown]
  - Impaired healing [Unknown]
